FAERS Safety Report 18849696 (Version 1)
Quarter: 2021Q1

REPORT INFORMATION
  Report Type: Spontaneous
  Country: FR (occurrence: FR)
  Receive Date: 20210205
  Receipt Date: 20210205
  Transmission Date: 20210420
  Serious: Yes (Disabling)
  Sender: FDA-Public Use
  Company Number: FR-TEVA-2021-FR-1875789

PATIENT
  Age: 70 Year
  Sex: Male
  Weight: 140 kg

DRUGS (9)
  1. CELECOXIB. [Suspect]
     Active Substance: CELECOXIB
     Indication: PRODUCT USED FOR UNKNOWN INDICATION
     Dosage: 2 DOSAGE FORMS
     Route: 048
     Dates: end: 20201204
  2. SIMVASTATINE [Concomitant]
     Active Substance: SIMVASTATIN
  3. LISINOPRIL ANHYDRE [Concomitant]
     Active Substance: LISINOPRIL
  4. ELIQUIS [Suspect]
     Active Substance: APIXABAN
     Indication: PRODUCT USED FOR UNKNOWN INDICATION
     Dosage: 2 DOSAGE FORMS
     Route: 048
     Dates: end: 20201004
  5. ALTIZIDE [Concomitant]
     Active Substance: ALTHIAZIDE
  6. SPIRONOLACTONE. [Concomitant]
     Active Substance: SPIRONOLACTONE
  7. ZOPICLONE [Concomitant]
     Active Substance: ZOPICLONE
  8. LERCAN [Concomitant]
     Active Substance: LERCANIDIPINE
  9. XATRAL [Concomitant]
     Active Substance: ALFUZOSIN

REACTIONS (1)
  - Cerebral haemorrhage [Recovering/Resolving]

NARRATIVE: CASE EVENT DATE: 20201004
